FAERS Safety Report 9954810 (Version 4)
Quarter: 2014Q2

REPORT INFORMATION
  Report Type: Spontaneous
  Country: IT (occurrence: IT)
  Receive Date: 20140304
  Receipt Date: 20140507
  Transmission Date: 20141212
  Serious: Yes (Hospitalization, Other)
  Sender: FDA-Public Use
  Company Number: IT-PFIZER INC-2014062993

PATIENT
  Age: 22 Year
  Sex: Female

DRUGS (3)
  1. VENLAFAXINE HCL [Suspect]
     Dosage: 525 MG, SINGLE
     Route: 048
     Dates: start: 20140225, end: 20140225
  2. SEROQUEL [Suspect]
     Dosage: 20 DF, SINGLE
     Route: 048
     Dates: start: 20140225, end: 20140225
  3. AKINETON [Suspect]
     Dosage: 40 DF, SINGLE
     Route: 048
     Dates: start: 20140225, end: 20140225

REACTIONS (3)
  - Coma [Recovered/Resolved]
  - Drug abuse [Recovered/Resolved]
  - Intentional self-injury [Recovered/Resolved]
